FAERS Safety Report 12345280 (Version 1)
Quarter: 2016Q2

REPORT INFORMATION
  Report Type: Spontaneous
  Country: US (occurrence: US)
  Receive Date: 20160507
  Receipt Date: 20160507
  Transmission Date: 20160815
  Serious: No
  Sender: FDA-Public Use
  Company Number: US-TEVA-657730USA

PATIENT
  Age: 30 Year
  Sex: Female

DRUGS (4)
  1. TURMERIC [Concomitant]
     Active Substance: TURMERIC
  2. PRENATAL VITAMINS [Concomitant]
     Active Substance: VITAMINS
  3. COPAXONE [Suspect]
     Active Substance: GLATIRAMER ACETATE
     Indication: MULTIPLE SCLEROSIS
     Route: 058
     Dates: start: 20150717
  4. VITAMIN D3 [Concomitant]
     Active Substance: CHOLECALCIFEROL

REACTIONS (1)
  - Injection site irritation [Not Recovered/Not Resolved]

NARRATIVE: CASE EVENT DATE: 201604
